FAERS Safety Report 6086498-4 (Version None)
Quarter: 2009Q1

REPORT INFORMATION
  Report Type: 
  Country: None (occurrence: None)
  Receive Date: 20090223
  Receipt Date: 20090218
  Transmission Date: 20090719
  Serious: Yes (Other)
  Sender: FDA-Public Use
  Company Number: US-JNJFOC-20070500652

PATIENT
  Sex: Female
  Weight: 68.04 kg

DRUGS (3)
  1. ARESTIN [Suspect]
     Route: 048
  2. ARESTIN [Suspect]
     Indication: DRUG USE FOR UNKNOWN INDICATION
     Route: 048
  3. MULTI-VITAMINS [Concomitant]
     Route: 065

REACTIONS (2)
  - EXOSTOSIS [None]
  - SWELLING [None]
